FAERS Safety Report 11312117 (Version 2)
Quarter: 2015Q4

REPORT INFORMATION
  Report Type: Spontaneous
  Country: PL (occurrence: PL)
  Receive Date: 20150727
  Receipt Date: 20151023
  Transmission Date: 20160304
  Serious: Yes (Life-Threatening, Other)
  Sender: FDA-Public Use
  Company Number: PL-PFIZER INC-2015244361

PATIENT
  Age: 68 Year
  Sex: Female
  Weight: 164 kg

DRUGS (5)
  1. METRONIDAZOL /00012501/ [Concomitant]
     Active Substance: METRONIDAZOLE
     Dosage: 4.5 (UNKNOWN UNIT) , 3X/DAY
  2. ECALTA [Suspect]
     Active Substance: ANIDULAFUNGIN
     Indication: OVERGROWTH FUNGAL
     Dosage: 200 MG, EVERY 4 HRS
     Route: 042
     Dates: start: 20150713, end: 20150713
  3. FUROSER [Concomitant]
     Dosage: 10 MG X 6
  4. TAZOCIN [Concomitant]
     Active Substance: PIPERACILLIN SODIUM\TAZOBACTAM SODIUM
     Dosage: 4.5 (UNKNOWN UNIT), 3X/DAY
  5. METRONIDAZOL /00012501/ [Concomitant]
     Active Substance: METRONIDAZOLE
     Dosage: 0.5 (UNKNOWN UNIT), 3X/DAY

REACTIONS (4)
  - Tachypnoea [Recovered/Resolved]
  - Erythema [Recovered/Resolved]
  - Blood pressure increased [Recovered/Resolved]
  - Tachycardia [Recovered/Resolved]

NARRATIVE: CASE EVENT DATE: 20150713
